FAERS Safety Report 17170086 (Version 3)
Quarter: 2020Q1

REPORT INFORMATION
  Report Type: Report from Study
  Country: US (occurrence: US)
  Receive Date: 20191218
  Receipt Date: 20200221
  Transmission Date: 20200409
  Serious: Yes (Life-Threatening, Hospitalization)
  Sender: FDA-Public Use
  Company Number: NVSC2019US067190

PATIENT
  Sex: Female

DRUGS (1)
  1. OMNITROPE [Suspect]
     Active Substance: SOMATROPIN
     Indication: PRODUCT USED FOR UNKNOWN INDICATION
     Route: 065

REACTIONS (11)
  - Malaise [Unknown]
  - Gait inability [Unknown]
  - Pain [Unknown]
  - Bronchitis [Unknown]
  - Joint injury [Unknown]
  - Product dose omission [Unknown]
  - Full blood count decreased [Unknown]
  - Body temperature increased [Unknown]
  - Near death experience [Unknown]
  - Pneumonia [Unknown]
  - Sinusitis [Unknown]
